FAERS Safety Report 15478622 (Version 2)
Quarter: 2018Q4

REPORT INFORMATION
  Report Type: Spontaneous
  Country: US (occurrence: US)
  Receive Date: 20181009
  Receipt Date: 20181221
  Transmission Date: 20190205
  Serious: Yes (Death, Other)
  Sender: FDA-Public Use
  Company Number: US-GILEAD-2018-0366845

PATIENT
  Age: 75 Year
  Sex: Female
  Weight: 64.5 kg

DRUGS (1)
  1. YESCARTA [Suspect]
     Active Substance: AXICABTAGENE CILOLEUCEL
     Indication: DIFFUSE LARGE B-CELL LYMPHOMA
     Dosage: MAX 2 X 10^8 CAR-T CELLS, ONCE
     Route: 042
     Dates: start: 20180918, end: 20180918

REACTIONS (9)
  - Respiratory distress [Unknown]
  - Atrial fibrillation [Unknown]
  - Pyrexia [Unknown]
  - Hypotension [Unknown]
  - Ejection fraction decreased [Unknown]
  - Renal failure [Fatal]
  - Cardiac arrest [Fatal]
  - Hypoxia [Unknown]
  - Cytokine release syndrome [Fatal]

NARRATIVE: CASE EVENT DATE: 20180918
